FAERS Safety Report 7827793-5 (Version None)
Quarter: 2011Q4

REPORT INFORMATION
  Report Type: 
  Country: None (occurrence: None)
  Receive Date: 20111019
  Receipt Date: 20111019
  Transmission Date: 20120403
  Serious: No
  Sender: FDA-Public Use
  Company Number: None

PATIENT
  Sex: Female

DRUGS (1)
  1. CEPHALEXIN [Suspect]

REACTIONS (3)
  - NASOPHARYNGITIS [None]
  - TONGUE COATED [None]
  - CYSTITIS [None]
